FAERS Safety Report 10159347 (Version 2)
Quarter: 2014Q2

REPORT INFORMATION
  Report Type: Report from Study
  Country: US (occurrence: US)
  Receive Date: 20140508
  Receipt Date: 20140508
  Transmission Date: 20141212
  Serious: No
  Sender: FDA-Public Use
  Company Number: US-ALEXION-A201304416

PATIENT
  Sex: 0

DRUGS (4)
  1. SOLIRIS [Suspect]
     Indication: PAROXYSMAL NOCTURNAL HAEMOGLOBINURIA
     Dosage: 900 MG, Q2W
     Route: 042
     Dates: start: 20131205
  2. SOLIRIS [Suspect]
     Dosage: UNK
     Route: 042
  3. SOLIRIS [Suspect]
     Dosage: UNK
  4. PENICILLIN-VK [Concomitant]
     Indication: PRODUCT USED FOR UNKNOWN INDICATION
     Dosage: 250 MG, BID
     Route: 065

REACTIONS (3)
  - Headache [Recovered/Resolved]
  - Sinusitis [Recovered/Resolved]
  - Cystitis [Recovered/Resolved]
